FAERS Safety Report 9376488 (Version 1)
Quarter: 2013Q2

REPORT INFORMATION
  Report Type: Spontaneous
  Country: US (occurrence: None)
  Receive Date: 20130628
  Receipt Date: 20130628
  Transmission Date: 20140414
  Serious: Yes (Hospitalization)
  Sender: FDA-Public Use
  Company Number: None

PATIENT
  Age: 85 Year
  Sex: Male
  Weight: 66.8 kg

DRUGS (2)
  1. HEPARIN [Suspect]
     Route: 040
     Dates: start: 20121206, end: 20121206
  2. ENOXAPARIN [Suspect]
     Indication: THROMBOSIS PROPHYLAXIS
     Route: 058
     Dates: start: 20121208, end: 20121211

REACTIONS (1)
  - Thrombocytopenia [None]
